FAERS Safety Report 20845744 (Version 2)
Quarter: 2022Q3

REPORT INFORMATION
  Report Type: Spontaneous
  Country: None (occurrence: US)
  Receive Date: 20220518
  Receipt Date: 20220831
  Transmission Date: 20221027
  Serious: No
  Sender: FDA-Public Use
  Company Number: US-Imprimis NJOF-2128909

PATIENT
  Age: 80 Year
  Sex: Male

DRUGS (1)
  1. CYCLOSPORINE/CHONDROITIN SULFATE PF [Suspect]
     Active Substance: CYCLOSPORINE
     Route: 047
     Dates: start: 20211214

REACTIONS (1)
  - Rash [Unknown]
